FAERS Safety Report 4888652-3 (Version None)
Quarter: 2005Q4

REPORT INFORMATION
  Report Type: 
  Country: None (occurrence: None)
  Receive Date: 20051215
  Receipt Date: 20041124
  Transmission Date: 20060501
  Serious: Yes (Other)
  Sender: FDA-Public Use
  Company Number: 2004101445

PATIENT
  Age: 58 Year
  Sex: Female

DRUGS (1)
  1. BEXTRA [Suspect]
     Indication: OSTEOARTHRITIS
     Dosage: (10 MG),ORAL
     Route: 048

REACTIONS (2)
  - HYPERTENSION [None]
  - PALPITATIONS [None]
